FAERS Safety Report 17995327 (Version 2)
Quarter: 2024Q2

REPORT INFORMATION
  Report Type: Spontaneous
  Country: US (occurrence: US)
  Receive Date: 20200708
  Receipt Date: 20240420
  Transmission Date: 20240716
  Serious: No
  Sender: FDA-Public Use
  Company Number: US-JNJFOC-20200708184

PATIENT
  Age: 13 Year
  Sex: Male

DRUGS (4)
  1. RISPERDAL [Suspect]
     Active Substance: RISPERIDONE
     Indication: Bipolar disorder
     Dosage: IN VARYING DOSES AND FREQUENCIES  OF 0.25 MG, 0.5 MG AND 1 MG AT BEDTIME, TWICE DAILY AND AT NIGHT
     Route: 048
     Dates: start: 20090514
  2. RISPERDAL [Suspect]
     Active Substance: RISPERIDONE
     Route: 048
     Dates: start: 201001
  3. RISPERDAL [Suspect]
     Active Substance: RISPERIDONE
     Dosage: IN VARYING DOSES AND FREQUENCIES OF 0.25 MG, 0.5 MG AND 1 MG, AT BEDTIME, TWICE DAILY AND AT NIGHT
     Route: 048
     Dates: end: 2012
  4. RISPERIDONE [Suspect]
     Active Substance: RISPERIDONE
     Indication: Product used for unknown indication
     Dosage: 01 IN THE MORNING AND 02 AT NIGHT
     Route: 048

REACTIONS (5)
  - Emotional disorder [Unknown]
  - Gynaecomastia [Unknown]
  - Weight increased [Unknown]
  - Increased appetite [Unknown]
  - Off label use [Unknown]

NARRATIVE: CASE EVENT DATE: 20100101
